FAERS Safety Report 15770048 (Version 2)
Quarter: 2019Q1

REPORT INFORMATION
  Report Type: Spontaneous
  Country: US (occurrence: US)
  Receive Date: 20181228
  Receipt Date: 20190326
  Transmission Date: 20190417
  Serious: No
  Sender: FDA-Public Use
  Company Number: US-GLENMARK PHARMACEUTICALS-2018GMK038469

PATIENT

DRUGS (1)
  1. LIDOCAINE OINTMENT USP 5% [Suspect]
     Active Substance: LIDOCAINE
     Indication: PAIN
     Dosage: UNK, OD (AS NEEDED)
     Route: 061
     Dates: start: 201811, end: 20181123

REACTIONS (1)
  - Drug ineffective [Unknown]

NARRATIVE: CASE EVENT DATE: 201811
